FAERS Safety Report 7341623-X (Version None)
Quarter: 2011Q1

REPORT INFORMATION
  Report Type: 
  Country: None (occurrence: None)
  Receive Date: 20110228
  Receipt Date: 20110214
  Transmission Date: 20110831
  Serious: Yes (Hospitalization)
  Sender: FDA-Public Use
  Company Number: CA-2011-0381

PATIENT

DRUGS (11)
  1. DEXAMETHASONE [Concomitant]
  2. VINORELBINE [Suspect]
     Indication: NON-SMALL CELL LUNG CANCER
     Dosage: 52 MG IV
     Route: 042
     Dates: start: 20101220, end: 20101220
  3. KYTRIL [Concomitant]
  4. CETUXIMAB [Suspect]
     Indication: NON-SMALL CELL LUNG CANCER
     Dosage: 840 MG IV
     Route: 042
     Dates: start: 20101220, end: 20101220
  5. CISPLATIN [Suspect]
     Indication: NON-SMALL CELL LUNG CANCER
     Dosage: 160 MG IV
     Route: 042
     Dates: start: 20101220, end: 20101220
  6. EMEND [Concomitant]
  7. ATENOLOL [Concomitant]
  8. ASAPHEN [Concomitant]
  9. ATIVAN [Concomitant]
  10. DIGOXIN [Concomitant]
  11. CRESTOR [Concomitant]

REACTIONS (3)
  - THROMBOPHLEBITIS [None]
  - PULMONARY EMBOLISM [None]
  - ATRIAL FIBRILLATION [None]
